FAERS Safety Report 9243277 (Version 1)
Quarter: 2013Q2

REPORT INFORMATION
  Report Type: Spontaneous
  Country: BR (occurrence: BR)
  Receive Date: 20130419
  Receipt Date: 20130419
  Transmission Date: 20140414
  Serious: Yes (Hospitalization, Other)
  Sender: FDA-Public Use
  Company Number: BR-MERCK-1304BRA009453

PATIENT
  Sex: Female
  Weight: 69 kg

DRUGS (2)
  1. REBETOL [Suspect]
     Indication: HEPATITIS C
     Dosage: UNK
     Route: 048
  2. PEGINTRON [Suspect]
     Indication: HEPATITIS C
     Dosage: UNK
     Route: 058

REACTIONS (3)
  - Leg amputation [Recovered/Resolved]
  - Road traffic accident [Recovered/Resolved]
  - Hepatitis C [Recovered/Resolved]
